FAERS Safety Report 14337160 (Version 1)
Quarter: 2017Q4

REPORT INFORMATION
  Report Type: Report from Study
  Country: JP (occurrence: JP)
  Receive Date: 20171229
  Receipt Date: 20171229
  Transmission Date: 20180321
  Serious: Yes (Hospitalization)
  Sender: FDA-Public Use
  Company Number: JP-JNJFOC-20170304734

PATIENT
  Age: 42 Year
  Sex: Male
  Weight: 63 kg

DRUGS (8)
  1. DEXAMETHASONE. [Concomitant]
     Active Substance: DEXAMETHASONE
     Indication: PREMEDICATION
     Route: 065
     Dates: start: 20160614
  2. YONDELIS [Suspect]
     Active Substance: TRABECTEDIN
     Indication: SPINDLE CELL SARCOMA
     Dosage: A 24-HOUR INFUSION
     Route: 042
     Dates: start: 20160614
  3. YONDELIS [Suspect]
     Active Substance: TRABECTEDIN
     Indication: SPINDLE CELL SARCOMA
     Dosage: A 24-HOUR INFUSION
     Route: 042
     Dates: start: 20160705
  4. YONDELIS [Suspect]
     Active Substance: TRABECTEDIN
     Indication: SPINDLE CELL SARCOMA
     Dosage: A 24-HOUR INFUSION
     Route: 042
     Dates: start: 20160816
  5. YONDELIS [Suspect]
     Active Substance: TRABECTEDIN
     Indication: SPINDLE CELL SARCOMA
     Dosage: A 24-HOUR INFUSION
     Route: 042
     Dates: start: 20160906
  6. YONDELIS [Suspect]
     Active Substance: TRABECTEDIN
     Indication: SPINDLE CELL SARCOMA
     Dosage: A 24-HOUR INFUSION
     Route: 042
     Dates: start: 20161003
  7. YONDELIS [Suspect]
     Active Substance: TRABECTEDIN
     Indication: SPINDLE CELL SARCOMA
     Dosage: A 24-HOUR INFUSION
     Route: 042
     Dates: start: 20161025, end: 20161109
  8. YONDELIS [Suspect]
     Active Substance: TRABECTEDIN
     Indication: SPINDLE CELL SARCOMA
     Dosage: A 24-HOUR INFUSION
     Route: 042
     Dates: start: 20160726

REACTIONS (3)
  - Anaemia [Recovered/Resolved]
  - Bone marrow failure [Recovering/Resolving]
  - Cellulitis [Recovering/Resolving]

NARRATIVE: CASE EVENT DATE: 20160816
